FAERS Safety Report 9456289 (Version 1)
Quarter: 2013Q3

REPORT INFORMATION
  Report Type: Spontaneous
  Country: US (occurrence: US)
  Receive Date: 20130813
  Receipt Date: 20130813
  Transmission Date: 20140515
  Serious: Yes (Other)
  Sender: FDA-Public Use
  Company Number: US-GLAXOSMITHKLINE-A1036462A

PATIENT
  Age: 70 Year
  Sex: Female

DRUGS (4)
  1. ADVAIR [Suspect]
     Indication: ASTHMA
     Dosage: 1PUFF TWICE PER DAY
     Route: 055
  2. OMEPRAZOLE [Concomitant]
  3. CELEBREX [Concomitant]
  4. FIORICET [Concomitant]

REACTIONS (2)
  - Oesophageal carcinoma [Recovered/Resolved]
  - Accidental exposure to product [Unknown]
